FAERS Safety Report 8889197 (Version 2)
Quarter: 2012Q4

REPORT INFORMATION
  Report Type: 
  Country: DE (occurrence: DE)
  Receive Date: 20121106
  Receipt Date: 20121213
  Transmission Date: 20130627
  Serious: Yes (Hospitalization, Disabling)
  Sender: FDA-Public Use
  Company Number: DE-ROCHE-1152933

PATIENT
  Age: 49 Year
  Sex: Female

DRUGS (4)
  1. MABTHERA [Suspect]
     Indication: RHEUMATOID ARTHRITIS
     Route: 042
  2. MABTHERA [Suspect]
     Indication: POLYARTHRITIS
  3. VIGANTOLETTEN [Concomitant]
     Route: 048
  4. PANTOPRAZOLE [Concomitant]
     Route: 048

REACTIONS (1)
  - Polyneuropathy [Not Recovered/Not Resolved]
